FAERS Safety Report 5852053-1 (Version None)
Quarter: 2008Q3

REPORT INFORMATION
  Report Type: 
  Country: None (occurrence: None)
  Receive Date: 20080820
  Receipt Date: 20080820
  Transmission Date: 20090109
  Serious: Yes (Other)
  Sender: FDA-Public Use
  Company Number: None

PATIENT
  Age: 50 Year
  Sex: Male
  Weight: 83.0083 kg

DRUGS (1)
  1. CHANTIX [Suspect]
     Indication: SMOKING CESSATION THERAPY
     Dosage: 1MG PO BID
     Route: 048
     Dates: start: 20080305, end: 20080402

REACTIONS (4)
  - AGITATION [None]
  - ANGER [None]
  - ANXIETY [None]
  - DIZZINESS [None]
